FAERS Safety Report 7621685-2 (Version None)
Quarter: 2011Q3

REPORT INFORMATION
  Report Type: 
  Country: None (occurrence: None)
  Receive Date: 20110719
  Receipt Date: 20110706
  Transmission Date: 20111222
  Serious: Yes (Hospitalization, Other)
  Sender: FDA-Public Use
  Company Number: US-AMGEN-USASP2011002437

PATIENT
  Age: 74 Year
  Sex: Female
  Weight: 64.399 kg

DRUGS (4)
  1. SALSALATE [Concomitant]
  2. ENBREL [Suspect]
     Indication: RHEUMATOID ARTHRITIS
     Dosage: 50 MG, QWK
     Dates: start: 20051018
  3. PRILOSEC [Concomitant]
  4. ALLEGRA [Concomitant]

REACTIONS (6)
  - CHOLECYSTECTOMY [None]
  - LIVER ABSCESS [None]
  - SKIN EXFOLIATION [None]
  - DRY SKIN [None]
  - PANCREATITIS [None]
  - PRURITUS [None]
